FAERS Safety Report 5789031-7 (Version None)
Quarter: 2008Q2

REPORT INFORMATION
  Report Type: 
  Country: None (occurrence: None)
  Receive Date: 20080626
  Receipt Date: 20080619
  Transmission Date: 20081010
  Serious: Yes (Other)
  Sender: FDA-Public Use
  Company Number: B0359584A

PATIENT
  Age: 36 Year
  Sex: Female

DRUGS (6)
  1. SEROXAT [Suspect]
     Route: 065
     Dates: start: 20001010
  2. IBUROFEN [Suspect]
     Route: 065
  3. ACETAMINOPHEN [Suspect]
     Route: 065
  4. ALCOHOL [Suspect]
     Route: 065
  5. FLUOXETINE [Concomitant]
     Dosage: 40MG PER DAY
  6. CHLORDIAZEPOXIDE [Concomitant]
     Dates: start: 20001108

REACTIONS (22)
  - ABASIA [None]
  - ABNORMAL BEHAVIOUR [None]
  - ADVERSE DRUG REACTION [None]
  - AGGRESSION [None]
  - AGITATION [None]
  - ANXIETY [None]
  - ASTHENIA [None]
  - BALANCE DISORDER [None]
  - CONFUSIONAL STATE [None]
  - DISINHIBITION [None]
  - DISTURBANCE IN ATTENTION [None]
  - FEAR [None]
  - MUSCULAR WEAKNESS [None]
  - OVERDOSE [None]
  - PANIC ATTACK [None]
  - PARAESTHESIA [None]
  - PARANOIA [None]
  - RESTLESSNESS [None]
  - SUICIDAL BEHAVIOUR [None]
  - SYNCOPE [None]
  - TEARFULNESS [None]
  - WITHDRAWAL SYNDROME [None]
